FAERS Safety Report 5327806-9 (Version None)
Quarter: 2007Q2

REPORT INFORMATION
  Report Type: 
  Country: None (occurrence: None)
  Receive Date: 20070517
  Receipt Date: 20070507
  Transmission Date: 20071010
  Serious: Yes (Other)
  Sender: FDA-Public Use
  Company Number: JP-JNJFOC-20070502881

PATIENT
  Age: 34 Year
  Sex: Male

DRUGS (7)
  1. RISPERDAL [Suspect]
     Indication: DRUG USE FOR UNKNOWN INDICATION
     Route: 048
  2. VEGETAMIN [Concomitant]
     Route: 048
  3. MYSLEE [Concomitant]
     Route: 048
  4. SILECE [Concomitant]
     Route: 048
  5. PAXIL [Concomitant]
     Route: 048
  6. TOLEDOMIN [Concomitant]
     Route: 048
  7. DEPAS [Concomitant]
     Route: 048

REACTIONS (1)
  - RHABDOMYOLYSIS [None]
